FAERS Safety Report 5313395-1 (Version None)
Quarter: 2007Q2

REPORT INFORMATION
  Report Type: 
  Country: None (occurrence: None)
  Receive Date: 20070427
  Receipt Date: 20070427
  Transmission Date: 20071010
  Serious: Yes (Hospitalization)
  Sender: FDA-Public Use
  Company Number: None

PATIENT
  Sex: Male
  Weight: 116.8 kg

DRUGS (1)
  1. TEMOZOLOMIDE [Suspect]
     Dosage: 7140 MG

REACTIONS (8)
  - ASTHENIA [None]
  - DYSPNOEA EXERTIONAL [None]
  - FAECES DISCOLOURED [None]
  - MUSCULOSKELETAL PAIN [None]
  - NEUTROPHIL COUNT DECREASED [None]
  - OEDEMA PERIPHERAL [None]
  - PLATELET COUNT DECREASED [None]
  - WHITE BLOOD CELL COUNT DECREASED [None]
